FAERS Safety Report 16724581 (Version 1)
Quarter: 2019Q3

REPORT INFORMATION
  Report Type: Report from Study
  Country: US (occurrence: US)
  Receive Date: 20190821
  Receipt Date: 20190821
  Transmission Date: 20191005
  Serious: Yes (Other)
  Sender: FDA-Public Use
  Company Number: US-JNJFOC-20190808348

PATIENT

DRUGS (5)
  1. DOXORUBICIN HYDROCHLORIDE. [Suspect]
     Active Substance: DOXORUBICIN HYDROCHLORIDE
     Indication: RHABDOMYOSARCOMA
     Dosage: WEEKS 1, 4, 10, 19, AND 28
     Route: 042
  2. ETOPOSIDE. [Suspect]
     Active Substance: ETOPOSIDE
     Indication: RHABDOMYOSARCOMA
     Dosage: 100 MG/M2/D, WEEKS 7, 13, 16, 22, 25, AND 31
     Route: 042
  3. IFOSFAMIDE. [Suspect]
     Active Substance: IFOSFAMIDE
     Indication: RHABDOMYOSARCOMA
     Dosage: 1.8 G/M2/D, WEEKS 7, 13, 16, 22, 25, AND 31
     Route: 042
  4. TIRAPAZAMINE [Suspect]
     Active Substance: TIRAPAZAMINE
     Indication: RHABDOMYOSARCOMA
     Dosage: WEEKS 1, 4, 10, 19, AND 28
     Route: 042
  5. CYCLOPHOSPHAMIDE. [Suspect]
     Active Substance: CYCLOPHOSPHAMIDE
     Indication: RHABDOMYOSARCOMA
     Dosage: 1.2 G/M2, WEEKS 1, 4, 10, 19, AND 28
     Route: 042

REACTIONS (8)
  - Product use in unapproved indication [Unknown]
  - Myalgia [Unknown]
  - Stomatitis [Unknown]
  - Ototoxicity [Unknown]
  - Cardiac failure [Unknown]
  - Vomiting [Unknown]
  - Infection [Unknown]
  - Off label use [Unknown]
